FAERS Safety Report 19520337 (Version 3)
Quarter: 2022Q2

REPORT INFORMATION
  Report Type: Spontaneous
  Country: CA (occurrence: CA)
  Receive Date: 20210712
  Receipt Date: 20220406
  Transmission Date: 20220721
  Serious: Yes (Hospitalization, Other)
  Sender: FDA-Public Use
  Company Number: CA-SA-SAC20210709000038

PATIENT
  Age: 48 Year
  Sex: Female
  Weight: 106 kg

DRUGS (25)
  1. RANITIDINE [Suspect]
     Active Substance: RANITIDINE
     Indication: Tardive dyskinesia
     Dosage: 626.0 MG
     Route: 065
  2. RANITIDINE [Suspect]
     Active Substance: RANITIDINE
     Dosage: 150 MG, QD EVERY 12 HOURS
  3. APREPITANT [Suspect]
     Active Substance: APREPITANT
     Indication: Supportive care
     Dosage: 80 MG, QD
     Route: 048
  4. APREPITANT [Suspect]
     Active Substance: APREPITANT
     Dosage: 125.0 MG
     Route: 048
  5. BETAMETHASONE [Suspect]
     Active Substance: BETAMETHASONE
     Indication: Tardive dyskinesia
     Dosage: 1 DF, FREQUENCY: EVERY 12 HRS
     Route: 048
  6. DEXAMETHASONE [Suspect]
     Active Substance: DEXAMETHASONE
     Indication: Nausea
     Dosage: 20.0 MG, QD
  7. DEXAMETHASONE [Suspect]
     Active Substance: DEXAMETHASONE
     Indication: Supportive care
  8. DOXORUBICIN [Suspect]
     Active Substance: DOXORUBICIN
     Indication: Breast cancer
     Dosage: 136.0 MG
     Route: 042
  9. LEVOFLOXACIN [Suspect]
     Active Substance: LEVOFLOXACIN
     Indication: Tardive dyskinesia
     Dosage: 500 MG, QD
     Route: 048
  10. LORAZEPAM [Suspect]
     Active Substance: LORAZEPAM
     Indication: Tardive dyskinesia
     Dosage: 500 MG, QD
     Route: 048
  11. LORAZEPAM [Suspect]
     Active Substance: LORAZEPAM
     Dosage: .5 MG QD
  12. ONDANSETRON [Suspect]
     Active Substance: ONDANSETRON
     Indication: Supportive care
     Dosage: 8.0 MG
     Route: 048
  13. TRASTUZUMAB [Suspect]
     Active Substance: TRASTUZUMAB
     Indication: Tardive dyskinesia
     Dosage: 626 MG
     Route: 065
  14. TRASTUZUMAB [Suspect]
     Active Substance: TRASTUZUMAB
     Dosage: 866 MG
     Route: 065
  15. PACLITAXEL [Suspect]
     Active Substance: PACLITAXEL
     Indication: Breast cancer
     Dosage: 243 MG
     Route: 042
  16. PACLITAXEL [Suspect]
     Active Substance: PACLITAXEL
     Dosage: 393 MG
     Route: 042
  17. PACLITAXEL [Suspect]
     Active Substance: PACLITAXEL
     Dosage: 303 MG
     Route: 042
  18. ENOXAPARIN SODIUM [Suspect]
     Active Substance: ENOXAPARIN SODIUM
     Indication: Tardive dyskinesia
     Dosage: 150 MG, QD
     Route: 058
  19. METOCLOPRAMIDE [Suspect]
     Active Substance: METOCLOPRAMIDE
     Indication: Tardive dyskinesia
     Dosage: 0.5 MG, FREQUENCY: 1 EVERY 6 HRS
  20. METOCLOPRAMIDE [Suspect]
     Active Substance: METOCLOPRAMIDE
     Dosage: 10 MG, QD, EVERY 6 HOURS
  21. FILGRASTIM [Suspect]
     Active Substance: FILGRASTIM
     Indication: Supportive care
     Dosage: 480 MG, QD
     Route: 065
  22. FILGRASTIM [Suspect]
     Active Substance: FILGRASTIM
     Dosage: 125 MG
     Route: 048
  23. PEGFILGRASTIM [Suspect]
     Active Substance: PEGFILGRASTIM
     Indication: Supportive care
     Dosage: 6 MG
     Route: 058
  24. CYCLOPHOSPHAMIDE [Suspect]
     Active Substance: CYCLOPHOSPHAMIDE
     Indication: Breast cancer
     Dosage: 1360.0 MG
     Route: 042
  25. ACETAMINOPHEN AND CODEINE [Suspect]
     Active Substance: ACETAMINOPHEN\CODEINE PHOSPHATE
     Indication: Tardive dyskinesia
     Dosage: 30.0 MG, FREQUENCY 1 EVERY 4 HRS

REACTIONS (10)
  - Atelectasis [Recovered/Resolved]
  - Computerised tomogram thorax abnormal [Recovered/Resolved]
  - Cough [Recovered/Resolved]
  - Dyspnoea [Recovered/Resolved]
  - Fatigue [Recovered/Resolved]
  - Gastrointestinal disorder [Recovered/Resolved]
  - Hypoxia [Recovered/Resolved]
  - Nausea [Recovered/Resolved]
  - Pyrexia [Recovered/Resolved]
  - Rash [Recovered/Resolved]
